FAERS Safety Report 5880550-1 (Version None)
Quarter: 2008Q3

REPORT INFORMATION
  Report Type: 
  Country: None (occurrence: None)
  Receive Date: 20080912
  Receipt Date: 20080602
  Transmission Date: 20090109
  Serious: No
  Sender: FDA-Public Use
  Company Number: US-ABBOTT-08P-163-0454386-00

PATIENT
  Sex: Female

DRUGS (3)
  1. HUMIRA [Suspect]
     Indication: CROHN'S DISEASE
     Dosage: 160MG ONCE
     Route: 058
     Dates: start: 20080520, end: 20080520
  2. HUMIRA [Suspect]
     Dosage: 80 MG ONCE
     Dates: start: 20080603, end: 20080603
  3. HUMIRA [Suspect]

REACTIONS (1)
  - FATIGUE [None]
